FAERS Safety Report 10474839 (Version 2)
Quarter: 2014Q4

REPORT INFORMATION
  Report Type: Spontaneous
  Country: US (occurrence: US)
  Receive Date: 20140925
  Receipt Date: 20141013
  Transmission Date: 20150528
  Serious: No
  Sender: FDA-Public Use
  Company Number: US-AMGEN INC.-USASP2014072493

PATIENT
  Age: 53 Year
  Sex: Female
  Weight: 92.06 kg

DRUGS (2)
  1. ALBUTEROL                          /00139501/ [Suspect]
     Active Substance: ALBUTEROL
     Indication: PRODUCT USED FOR UNKNOWN INDICATION
     Route: 065
  2. ENBREL [Suspect]
     Active Substance: ETANERCEPT
     Indication: RHEUMATOID ARTHRITIS
     Dosage: 50 MG, QWK
     Route: 058
     Dates: start: 201405

REACTIONS (2)
  - Dry mouth [Unknown]
  - Dizziness postural [Unknown]

NARRATIVE: CASE EVENT DATE: 20140901
